FAERS Safety Report 26207391 (Version 1)
Quarter: 2025Q4

REPORT INFORMATION
  Report Type: Spontaneous
  Country: CN (occurrence: CN)
  Receive Date: 20251229
  Receipt Date: 20251229
  Transmission Date: 20260118
  Serious: Yes (Other)
  Sender: CHEPLAPHARM
  Company Number: CN-CHEPLA-2025014471

PATIENT
  Age: 57 Year
  Sex: Male
  Weight: 97.5 kg

DRUGS (9)
  1. CAPECITABINE [Suspect]
     Active Substance: CAPECITABINE
     Indication: Colon cancer
     Dates: start: 20251007, end: 20251007
  2. CAPECITABINE [Suspect]
     Active Substance: CAPECITABINE
     Indication: Colon cancer
     Dates: start: 20251028, end: 20251028
  3. CAPECITABINE [Suspect]
     Active Substance: CAPECITABINE
     Indication: Colon cancer
     Dosage: BID; APPROVAL NO. GYZZ H20073024?DAILY DOSE: 4 GRAM
     Route: 048
     Dates: start: 20251118, end: 20251201
  4. CAPECITABINE [Suspect]
     Active Substance: CAPECITABINE
     Indication: Colon cancer
     Dates: start: 20251209, end: 20251209
  5. OXALIPLATIN [Suspect]
     Active Substance: OXALIPLATIN
     Indication: Colon cancer
     Dates: start: 20251007, end: 20251007
  6. OXALIPLATIN [Suspect]
     Active Substance: OXALIPLATIN
     Indication: Colon cancer
     Dates: start: 20251028, end: 20251028
  7. OXALIPLATIN [Suspect]
     Active Substance: OXALIPLATIN
     Indication: Colon cancer
     Dosage: APPROVAL NO. GYZZ H20213060; QD; INTRAVENOUS INFUSION?DAILY DOSE: 250 MILLIGRAM
     Route: 042
     Dates: start: 20251118, end: 20251118
  8. OXALIPLATIN [Suspect]
     Active Substance: OXALIPLATIN
     Indication: Colon cancer
     Dates: start: 20251209, end: 20251209
  9. Huachansu [Concomitant]
     Indication: Colon cancer
     Dosage: APPROVAL NO. GYZZ Z20050846; TID?DAILY DOSE: 1500 MILLIGRAM
     Route: 048
     Dates: start: 20251118, end: 20251121

REACTIONS (1)
  - Blood glucose increased [Recovering/Resolving]

NARRATIVE: CASE EVENT DATE: 20251209
